FAERS Safety Report 7703222-7 (Version None)
Quarter: 2011Q3

REPORT INFORMATION
  Report Type: 
  Country: None (occurrence: None)
  Receive Date: 20110823
  Receipt Date: 20110817
  Transmission Date: 20111222
  Serious: Yes (Death, Life-Threatening, Other)
  Sender: FDA-Public Use
  Company Number: JP-CEPHALON-2011001059

PATIENT
  Sex: Female
  Weight: 40 kg

DRUGS (14)
  1. MAGNESIUM OXIDE [Concomitant]
     Dates: end: 20110311
  2. CEFEPIME HYDROCHLORIDE [Concomitant]
     Dates: start: 20110315, end: 20110317
  3. SULFAMETHOXAZOLE AND TRIMETHOPRIM [Concomitant]
     Dates: end: 20110317
  4. PREDNISOLONE [Concomitant]
     Dates: end: 20110310
  5. TOLUBUTEROL [Concomitant]
     Dates: end: 20110311
  6. BUDESONIDE [Concomitant]
     Dates: end: 20110311
  7. ZOLPIDEM TARTRATE [Concomitant]
     Dates: end: 20110311
  8. SULBACTAM + AMPICILINA [Concomitant]
     Dates: start: 20110311, end: 20110314
  9. OMEPRAZOLE SODIUM [Concomitant]
     Dates: start: 20110312, end: 20110317
  10. BENDAMUSTINE HCL [Suspect]
     Indication: NON-HODGKIN'S LYMPHOMA RECURRENT
     Route: 041
     Dates: start: 20110201, end: 20110202
  11. BENDAMUSTINE HCL [Suspect]
     Route: 041
     Dates: end: 20110223
  12. SENNOSIDE [Concomitant]
     Dates: end: 20110311
  13. GRANISETRON HYDROCHLORIDE [Concomitant]
     Dates: start: 20110201, end: 20110222
  14. SODIUM BICARBONATE [Concomitant]
     Dates: start: 20110315, end: 20110317

REACTIONS (9)
  - BLOOD URIC ACID INCREASED [None]
  - BLOOD POTASSIUM INCREASED [None]
  - RESPIRATORY ACIDOSIS [None]
  - OBLITERATIVE BRONCHIOLITIS [None]
  - ANAEMIA [None]
  - BLOOD SODIUM INCREASED [None]
  - NEUTROPHIL COUNT DECREASED [None]
  - WHITE BLOOD CELL COUNT DECREASED [None]
  - INFECTION [None]
